FAERS Safety Report 8355194 (Version 2)
Quarter: 2014Q1

REPORT INFORMATION
  Report Type: Spontaneous
  Country: US (occurrence: US)
  Receive Date: 20120126
  Receipt Date: 20140117
  Transmission Date: 20141002
  Serious: Yes (Other)
  Sender: FDA-Public Use
  Company Number: US-BAYER-2012-006341

PATIENT
  Age: 32 Year
  Sex: Female

DRUGS (5)
  1. YAZ [Suspect]
     Dosage: UNK
     Dates: start: 2006, end: 20091109
  2. FLUCONAZOLE [Concomitant]
     Dosage: 150 MG, 1 FOR 1 DAY
     Route: 048
  3. TERCONAZOLE [Concomitant]
     Dosage: 0.4 %, ONE APPLICATORFUL FOR SEVEN NIGHTS
     Route: 067
  4. MAXALT [Concomitant]
     Indication: HEADACHE
     Dosage: 10 MG, ONE AS NEEDED
     Route: 048
  5. VICODIN [Concomitant]

REACTIONS (5)
  - Cholecystectomy [None]
  - Cholecystitis chronic [None]
  - Pain [None]
  - Injury [None]
  - Emotional distress [None]
